FAERS Safety Report 14847420 (Version 3)
Quarter: 2018Q2

REPORT INFORMATION
  Report Type: Report from Study
  Country: FR (occurrence: FR)
  Receive Date: 20180504
  Receipt Date: 20180608
  Transmission Date: 20180711
  Serious: Yes (Other)
  Sender: FDA-Public Use
  Company Number: FR-ACTELION-A-CH2017-161048

PATIENT
  Age: 64 Year
  Sex: Female
  Weight: 60.3 kg

DRUGS (9)
  1. UPTRAVI [Suspect]
     Active Substance: SELEXIPAG
     Dosage: 600 ?G, BID
     Route: 048
     Dates: start: 20171020
  2. TADALAFIL [Concomitant]
     Active Substance: TADALAFIL
     Dosage: 20 MG, UNK
  3. UPTRAVI [Suspect]
     Active Substance: SELEXIPAG
     Dosage: 800 ?G, BID
     Route: 048
     Dates: start: 20180305
  4. OPSUMIT [Concomitant]
     Active Substance: MACITENTAN
  5. UPTRAVI [Suspect]
     Active Substance: SELEXIPAG
     Dosage: 800 ?G, BID
     Route: 048
     Dates: start: 20180109
  6. UPTRAVI [Suspect]
     Active Substance: SELEXIPAG
     Indication: PULMONARY ARTERIAL HYPERTENSION
     Dosage: 200 ?G, BID
     Route: 048
     Dates: start: 20170929
  7. UPTRAVI [Suspect]
     Active Substance: SELEXIPAG
     Dosage: 400 ?G, BID
     Route: 048
     Dates: start: 20171013
  8. UPTRAVI [Suspect]
     Active Substance: SELEXIPAG
     Dosage: 600 ?G, BID
     Route: 048
     Dates: start: 20180215
  9. UPTRAVI [Suspect]
     Active Substance: SELEXIPAG
     Dosage: 1200 ?G, OD
     Route: 048

REACTIONS (22)
  - Decreased appetite [Not Recovered/Not Resolved]
  - Rhinitis [Recovered/Resolved]
  - Polydipsia [Not Recovered/Not Resolved]
  - Abdominal pain upper [Recovered/Resolved]
  - Faeces soft [Not Recovered/Not Resolved]
  - Thirst [Not Recovered/Not Resolved]
  - Ageusia [Not Recovered/Not Resolved]
  - Tooth abscess [Recovering/Resolving]
  - Diarrhoea [Not Recovered/Not Resolved]
  - Headache [Recovered/Resolved]
  - Fatigue [Recovering/Resolving]
  - Flushing [Recovered/Resolved]
  - Abdominal pain [Recovered/Resolved]
  - Diabetes insipidus [Not Recovered/Not Resolved]
  - Weight decreased [Unknown]
  - Limb discomfort [Recovered/Resolved]
  - Dizziness [Recovered/Resolved]
  - Dyspnoea [Recovering/Resolving]
  - Dry mouth [Not Recovered/Not Resolved]
  - Pain in jaw [Recovered/Resolved]
  - Myalgia [Recovered/Resolved]
  - Concomitant disease aggravated [Not Recovered/Not Resolved]

NARRATIVE: CASE EVENT DATE: 201710
